FAERS Safety Report 6946138-6 (Version None)
Quarter: 2010Q3

REPORT INFORMATION
  Report Type: 
  Country: None (occurrence: None)
  Receive Date: 20100827
  Receipt Date: 20100726
  Transmission Date: 20110219
  Serious: No
  Sender: FDA-Public Use
  Company Number: US-PFIZER INC-2010092942

PATIENT
  Sex: Female
  Weight: 47.619 kg

DRUGS (4)
  1. ALPRAZOLAM [Suspect]
     Indication: ANXIETY
     Dosage: 0.5 MG, 2X/DAY
     Route: 048
     Dates: start: 20100716, end: 20100717
  2. ALPRAZOLAM [Suspect]
     Dosage: 0.5 MG, 2X/DAY
     Route: 048
     Dates: start: 20100719
  3. BENZYLPENICILLIN SODIUM [Suspect]
     Dosage: UNK
  4. BENAZEPRIL [Concomitant]
     Indication: HYPERTENSION
     Dosage: 5 MG, 1X/DAY
     Route: 048

REACTIONS (9)
  - ADVERSE DRUG REACTION [None]
  - DISCOMFORT [None]
  - DISORIENTATION [None]
  - DRUG INEFFECTIVE [None]
  - FEELING ABNORMAL [None]
  - MALAISE [None]
  - MYDRIASIS [None]
  - SINUS DISORDER [None]
  - WEIGHT DECREASED [None]
